FAERS Safety Report 17291682 (Version 1)
Quarter: 2020Q1

REPORT INFORMATION
  Report Type: Spontaneous
  Country: FR (occurrence: FR)
  Receive Date: 20200121
  Receipt Date: 20200121
  Transmission Date: 20200409
  Serious: Yes (Hospitalization)
  Sender: FDA-Public Use
  Company Number: FR-ACCORD-170198

PATIENT

DRUGS (13)
  1. NITROUS OXIDE. [Suspect]
     Active Substance: NITROUS OXIDE
     Indication: GENERAL ANAESTHESIA
     Dosage: UNK
     Route: 055
  2. MIDAZOLAM/MIDAZOLAM HYDROCHLORIDE/MIDAZOLAM MALEATE [Suspect]
     Active Substance: MIDAZOLAM HYDROCHLORIDE
     Indication: PREMEDICATION
     Dosage: 0.3-5 MG/KG,ROUTE OF ADMINISTRATION-RECTAL
     Route: 060
  3. ONDANSETRON [Suspect]
     Active Substance: ONDANSETRON
     Indication: PROPHYLAXIS OF NAUSEA AND VOMITING
     Route: 065
  4. DEXAMETHASONE. [Suspect]
     Active Substance: DEXAMETHASONE
     Indication: PROPHYLAXIS OF NAUSEA AND VOMITING
     Dosage: 150 UG/KG
     Route: 065
  5. ATRACURIUM [Suspect]
     Active Substance: ATRACURIUM
     Indication: NEUROMUSCULAR BLOCKING THERAPY
     Dosage: UNK
     Route: 065
  6. SUFENTANIL [Suspect]
     Active Substance: SUFENTANIL
     Indication: ANALGESIC THERAPY
     Dosage: UNK
     Route: 042
  7. DEXAMETHASONE. [Suspect]
     Active Substance: DEXAMETHASONE
     Indication: PROPHYLAXIS OF NAUSEA AND VOMITING
     Dosage: 150 UG/KG
     Route: 065
  8. PROFENID [Suspect]
     Active Substance: KETOPROFEN
     Indication: ANALGESIC THERAPY
     Dosage: UNK
     Route: 065
  9. DROPERIDOL/DROPERIDOL LACTATE [Suspect]
     Active Substance: DROPERIDOL
     Indication: PROPHYLAXIS OF NAUSEA AND VOMITING
     Dosage: 50 - 75 UG/KG, UNK
     Route: 065
  10. ONDANSETRON [Suspect]
     Active Substance: ONDANSETRON
     Indication: PROPHYLAXIS OF NAUSEA AND VOMITING
     Dosage: 100 UG/KG
     Route: 065
  11. PARACETAMOL [Suspect]
     Active Substance: ACETAMINOPHEN
     Indication: ANALGESIC THERAPY
     Dosage: UNK
     Route: 065
  12. PROPOFOL. [Suspect]
     Active Substance: PROPOFOL
     Indication: ANAESTHESIA
     Dosage: 10 MG/KG, Q1HR
     Route: 065
  13. MORPHINE [Suspect]
     Active Substance: MORPHINE
     Indication: PAIN
     Dosage: UNK
     Route: 065

REACTIONS (3)
  - Procedural vomiting [Unknown]
  - Drug ineffective [Unknown]
  - Procedural nausea [Unknown]
